FAERS Safety Report 18154192 (Version 2)
Quarter: 2020Q3

REPORT INFORMATION
  Report Type: Spontaneous
  Country: JP (occurrence: JP)
  Receive Date: 20200816
  Receipt Date: 20200904
  Transmission Date: 20201103
  Serious: Yes (Other)
  Sender: FDA-Public Use
  Company Number: JP-BEH-2020120968

PATIENT
  Age: 3 Year
  Sex: Male

DRUGS (1)
  1. HUMAN IMMUNOGLOBULIN (NC) (IMMUNOGLOBULIN HUMAN NORMAL) [Suspect]
     Active Substance: HUMAN IMMUNOGLOBULIN G
     Indication: KAWASAKI^S DISEASE
     Route: 065

REACTIONS (5)
  - Pyrexia [Unknown]
  - Neck pain [Unknown]
  - Acute disseminated encephalomyelitis [Unknown]
  - Headache [Unknown]
  - Autoantibody positive [Unknown]
